FAERS Safety Report 5061132-0 (Version None)
Quarter: 2006Q3

REPORT INFORMATION
  Report Type: 
  Country: None (occurrence: None)
  Receive Date: 20060720
  Receipt Date: 20060621
  Transmission Date: 20061208
  Serious: Yes (Other)
  Sender: FDA-Public Use
  Company Number: 200613074BWH

PATIENT
  Age: 56 Year
  Sex: Male
  Weight: 86.1834 kg

DRUGS (7)
  1. NEXAVAR [Suspect]
     Indication: RENAL CELL CARCINOMA STAGE UNSPECIFIED
     Dosage: SEE IMAGE
     Route: 048
     Dates: start: 20060201, end: 20060621
  2. NEXAVAR [Suspect]
     Indication: RENAL CELL CARCINOMA STAGE UNSPECIFIED
     Dosage: SEE IMAGE
     Route: 048
     Dates: start: 20060624
  3. LIPITOR [Suspect]
  4. DIGOXIN [Concomitant]
  5. METOPROLOL [Concomitant]
  6. LEVOTHYROXINE SODIUM [Concomitant]
  7. HYTRIN [Concomitant]

REACTIONS (13)
  - ALOPECIA [None]
  - ANOREXIA [None]
  - ARRHYTHMIA [None]
  - CHEST DISCOMFORT [None]
  - DIARRHOEA [None]
  - DRY SKIN [None]
  - ERYTHEMA [None]
  - EYELID DISORDER [None]
  - FATIGUE [None]
  - LACRIMATION INCREASED [None]
  - NAUSEA [None]
  - PAIN IN EXTREMITY [None]
  - WEIGHT DECREASED [None]
